FAERS Safety Report 9159790 (Version 1)
Quarter: 2013Q1

REPORT INFORMATION
  Report Type: Spontaneous
  Country: FR (occurrence: None)
  Receive Date: 20130219
  Receipt Date: 20130219
  Transmission Date: 20140127
  Serious: Yes (Hospitalization)
  Sender: FDA-Public Use
  Company Number: DSM-2013-00216

PATIENT
  Age: 74 Year
  Sex: Female

DRUGS (9)
  1. COOLMETEC [Suspect]
     Indication: HYPERTENSION
     Route: 048
     Dates: end: 20100713
  2. NEXEN [Suspect]
     Indication: BACK PAIN
     Route: 048
     Dates: end: 20100713
  3. SKENAN [Suspect]
     Indication: BACK PAIN
     Route: 048
     Dates: start: 20100709, end: 20100713
  4. LAMALINE [Suspect]
  5. TAHOR (ATORVASTATIN CALCIUM) (ATORVASTATIN CALCIUM) [Concomitant]
  6. PIASCLEDINE (PIAS) (PIAS) [Concomitant]
  7. ALLOPURINOL (ALLOPURINOL) (ALLOPURINOL) [Concomitant]
  8. DAFALGAN (PARACETAMOL) (PARACETAMOL) [Concomitant]
  9. PROFENID (KETOPROFEN) (KETOPROFEN) [Concomitant]

REACTIONS (10)
  - Coma [None]
  - Hypotension [None]
  - Electrocardiogram QT prolonged [None]
  - Miosis [None]
  - Blood potassium increased [None]
  - Haemophilus test positive [None]
  - Staphylococcus test positive [None]
  - Renal failure acute [None]
  - Pneumonia aspiration [None]
  - Drug level increased [None]
